FAERS Safety Report 8958306 (Version 3)
Quarter: 2013Q1

REPORT INFORMATION
  Report Type: Spontaneous
  Country: DE (occurrence: DE)
  Receive Date: 20121210
  Receipt Date: 20130226
  Transmission Date: 20140127
  Serious: Yes (Other)
  Sender: FDA-Public Use
  Company Number: DE-EISAI INC-E2007-00969-SPO-DE

PATIENT
  Age: 26 None
  Sex: Male

DRUGS (4)
  1. FYCOMPA [Suspect]
     Indication: EPILEPSY
     Route: 048
     Dates: start: 201210, end: 201301
  2. ERGENYL CHRONO [Concomitant]
     Indication: EPILEPSY
     Dosage: 2000 MG/DAY
  3. ZONEGRAN [Concomitant]
     Indication: EPILEPSY
     Dosage: 400 MG/DAY
     Route: 048
  4. VIMPAT [Concomitant]
     Indication: EPILEPSY
     Dosage: 400 MG/DAY

REACTIONS (3)
  - Psychotic disorder [Unknown]
  - Feeling abnormal [Not Recovered/Not Resolved]
  - Aggression [Unknown]
